FAERS Safety Report 7865114-2 (Version None)
Quarter: 2011Q4

REPORT INFORMATION
  Report Type: 
  Country: None (occurrence: None)
  Receive Date: 20111028
  Receipt Date: 20101018
  Transmission Date: 20120403
  Serious: No
  Sender: FDA-Public Use
  Company Number: US-GLAXOSMITHKLINE-A0887378A

PATIENT
  Age: 64 Year
  Sex: Female

DRUGS (2)
  1. CONCURRENT MEDICATIONS [Concomitant]
  2. ADVAIR DISKUS 100/50 [Suspect]
     Indication: ASTHMA
     Dosage: 1PUFF TWICE PER DAY
     Route: 055
     Dates: start: 20010101

REACTIONS (5)
  - PRODUCT QUALITY ISSUE [None]
  - WHEEZING [None]
  - BRONCHITIS [None]
  - DYSPNOEA [None]
  - CANDIDIASIS [None]
